FAERS Safety Report 7656110-9 (Version None)
Quarter: 2011Q3

REPORT INFORMATION
  Report Type: 
  Country: None (occurrence: None)
  Receive Date: 20110804
  Receipt Date: 20110728
  Transmission Date: 20111222
  Serious: Yes (Other)
  Sender: FDA-Public Use
  Company Number: GB-ROCHE-793464

PATIENT
  Sex: Male
  Weight: 76.8 kg

DRUGS (4)
  1. CAPECITABINE [Suspect]
     Indication: GASTRIC CANCER
     Dosage: LAST DOSE PRIOR TO SAE WAS 04 FEB 2010. TOTAL DOSE: 52500 MG.
     Route: 048
     Dates: start: 20090723
  2. EPIRUBICIN [Suspect]
     Indication: GASTRIC CANCER
     Dosage: LAST DOSE PRIOR TO SAE WAS 04 FEB 2010
     Route: 042
     Dates: start: 20090723
  3. CISPLATIN [Suspect]
     Indication: GASTRIC CANCER
     Dosage: LAST DOSE PRIOR TO SAE WAS 04 FEB2010
     Route: 042
     Dates: start: 20090723
  4. BEVACIZUMAB [Suspect]
     Indication: GASTRIC CANCER
     Dosage: LAST DOSE PRIOR TO SAE WAS 08 JULY 2010
     Route: 042
     Dates: start: 20090723

REACTIONS (1)
  - CONVULSION [None]
